FAERS Safety Report 9463477 (Version 3)
Quarter: 2014Q1

REPORT INFORMATION
  Report Type: Spontaneous
  Country: US (occurrence: US)
  Receive Date: 20130819
  Receipt Date: 20140321
  Transmission Date: 20141002
  Serious: No
  Sender: FDA-Public Use
  Company Number: US-BIOGENIDEC-2013BI076485

PATIENT
  Age: 34 Year
  Sex: Female

DRUGS (2)
  1. TYSABRI [Suspect]
     Indication: MULTIPLE SCLEROSIS
     Route: 042
  2. TYSABRI [Suspect]
     Indication: MULTIPLE SCLEROSIS
     Route: 042
     Dates: start: 20130114, end: 20130906

REACTIONS (5)
  - Drug specific antibody present [Unknown]
  - Hypoaesthesia [Recovered/Resolved]
  - Neuropathy peripheral [Unknown]
  - Loss of consciousness [Recovered/Resolved]
  - Drug ineffective [Not Recovered/Not Resolved]
